FAERS Safety Report 7682311 (Version 3)
Quarter: 2013Q4

REPORT INFORMATION
  Report Type: Spontaneous
  Country: US (occurrence: US)
  Receive Date: 20101124
  Receipt Date: 20131018
  Transmission Date: 20140711
  Serious: Yes (Other)
  Sender: FDA-Public Use
  Company Number: US-ROCHE-722954

PATIENT
  Age: 17 Year
  Sex: Male
  Weight: 79.4 kg

DRUGS (2)
  1. ACCUTANE [Suspect]
     Indication: ACNE CYSTIC
     Route: 065
     Dates: start: 199203, end: 199208
  2. ACCUTANE [Suspect]
     Route: 065
     Dates: start: 19931104, end: 19940405

REACTIONS (11)
  - Crohn^s disease [Unknown]
  - Gastrointestinal injury [Unknown]
  - Anal fissure [Unknown]
  - Anal fistula [Unknown]
  - Inflammatory bowel disease [Unknown]
  - Myalgia [Unknown]
  - Epistaxis [Unknown]
  - Dry skin [Unknown]
  - Lip dry [Unknown]
  - Blood cholesterol increased [Unknown]
  - Acne [Recovered/Resolved]
